FAERS Safety Report 8380198-3 (Version None)
Quarter: 2012Q2

REPORT INFORMATION
  Report Type: 
  Country: None (occurrence: None)
  Receive Date: 20120523
  Receipt Date: 20120518
  Transmission Date: 20120825
  Serious: Yes (Other)
  Sender: FDA-Public Use
  Company Number: US-BAYER-2012-049194

PATIENT
  Age: 78 Year
  Sex: Male

DRUGS (3)
  1. NEXAVAR [Suspect]
     Indication: RENAL CELL CARCINOMA
     Dosage: 200 MG, QD
     Dates: start: 20120421, end: 20120425
  2. NEXAVAR [Suspect]
     Dosage: 200 MG, QD
     Dates: start: 20120515
  3. NEXAVAR [Suspect]
     Dosage: 200 MG, BID
     Dates: start: 20120426, end: 20120401

REACTIONS (2)
  - FLUID RETENTION [None]
  - BLOOD ELECTROLYTES DECREASED [None]
